FAERS Safety Report 7427666-6 (Version None)
Quarter: 2011Q2

REPORT INFORMATION
  Report Type: 
  Country: None (occurrence: None)
  Receive Date: 20110411
  Receipt Date: 20110328
  Transmission Date: 20111010
  Serious: Yes (Death, Disabling, Other)
  Sender: FDA-Public Use
  Company Number: 2011001432

PATIENT
  Age: 67 Year
  Sex: Male

DRUGS (2)
  1. TARCEVA [Suspect]
     Indication: NON-SMALL CELL LUNG CANCER METASTATIC
     Dosage: (150 MG), ORAL
     Route: 048
     Dates: start: 20101103, end: 20110104
  2. DOXYCYCLINE HYCLATE (DOXYCYCLINE-HYCLATE) [Concomitant]

REACTIONS (5)
  - WHEEZING [None]
  - NON-SMALL CELL LUNG CANCER METASTATIC [None]
  - NEOPLASM PROGRESSION [None]
  - DRUG INEFFECTIVE [None]
  - DYSPNOEA [None]
